FAERS Safety Report 5460595-6 (Version None)
Quarter: 2007Q3

REPORT INFORMATION
  Report Type: 
  Country: None (occurrence: None)
  Receive Date: 20070919
  Receipt Date: 20070907
  Transmission Date: 20080115
  Serious: Yes (Other)
  Sender: FDA-Public Use
  Company Number: GB-PFIZER INC-2007075128

PATIENT
  Age: 50 Year
  Sex: Male

DRUGS (4)
  1. CHAMPIX [Suspect]
     Indication: SMOKING CESSATION THERAPY
     Route: 048
     Dates: start: 20070627, end: 20070810
  2. LORAZEPAM [Concomitant]
     Indication: ANXIETY
     Route: 048
  3. TEMAZEPAM [Concomitant]
     Indication: SLEEP DISORDER
     Route: 048
  4. ALCOHOL [Concomitant]
     Dosage: FREQ:DAILY
     Route: 048

REACTIONS (5)
  - FALL [None]
  - HYPERHIDROSIS [None]
  - HYPERTENSION [None]
  - TACHYCARDIA [None]
  - TREMOR [None]
